FAERS Safety Report 13598089 (Version 1)
Quarter: 2017Q2

REPORT INFORMATION
  Report Type: Report from Study
  Country: US (occurrence: US)
  Receive Date: 20170531
  Receipt Date: 20170531
  Transmission Date: 20170830
  Serious: No
  Sender: FDA-Public Use
  Company Number: US-AMGEN-USASL2017081588

PATIENT
  Age: 35 Year
  Sex: Female

DRUGS (1)
  1. ENBREL [Suspect]
     Active Substance: ETANERCEPT
     Indication: ANKYLOSING SPONDYLITIS
     Dosage: 50 MG, QWK
     Route: 065

REACTIONS (7)
  - Injection site pain [Recovered/Resolved]
  - Fatigue [Unknown]
  - Injection site erythema [Unknown]
  - Therapy non-responder [Unknown]
  - Injection site warmth [Unknown]
  - Injection site irritation [Unknown]
  - Injection site urticaria [Unknown]
